FAERS Safety Report 16577280 (Version 1)
Quarter: 2019Q3

REPORT INFORMATION
  Report Type: Spontaneous
  Country: US (occurrence: US)
  Receive Date: 20190603
  Receipt Date: 20190603
  Transmission Date: 20191004
  Serious: No
  Sender: FDA-Public Use
  Company Number: None

PATIENT
  Age: 75 Year
  Sex: Female

DRUGS (4)
  1. NORCO [Concomitant]
     Active Substance: ACETAMINOPHEN\HYDROCODONE BITARTRATE
  2. MYCOPHENOLATE [Concomitant]
     Active Substance: MYCOPHENOLIC ACID
  3. PREDNISONE. [Concomitant]
     Active Substance: PREDNISONE
  4. TACROLIMUS CAP 1MG [Suspect]
     Active Substance: TACROLIMUS
     Route: 048
     Dates: start: 201608

REACTIONS (1)
  - Lower limb fracture [None]

NARRATIVE: CASE EVENT DATE: 20190603
